FAERS Safety Report 12014186 (Version 1)
Quarter: 2016Q1

REPORT INFORMATION
  Report Type: Spontaneous
  Country: DE (occurrence: DE)
  Receive Date: 20160205
  Receipt Date: 20160205
  Transmission Date: 20160526
  Serious: Yes (Hospitalization)
  Sender: FDA-Public Use
  Company Number: DE-JNJFOC-20151209068

PATIENT
  Age: 74 Year
  Sex: Male
  Weight: 85 kg

DRUGS (3)
  1. XARELTO [Suspect]
     Active Substance: RIVAROXABAN
     Indication: CEREBROVASCULAR ACCIDENT PROPHYLAXIS
     Route: 048
     Dates: start: 201507
  2. XARELTO [Suspect]
     Active Substance: RIVAROXABAN
     Indication: EMBOLISM VENOUS
     Route: 048
     Dates: start: 201507
  3. XARELTO [Suspect]
     Active Substance: RIVAROXABAN
     Indication: ATRIAL FIBRILLATION
     Route: 048
     Dates: start: 201507

REACTIONS (4)
  - Inguinal hernia [Recovered/Resolved]
  - Lower gastrointestinal haemorrhage [Unknown]
  - Diverticulum intestinal haemorrhagic [Recovered/Resolved]
  - Abdominal wall haemorrhage [Recovered/Resolved]

NARRATIVE: CASE EVENT DATE: 201509
